FAERS Safety Report 25196864 (Version 1)
Quarter: 2025Q2

REPORT INFORMATION
  Report Type: Spontaneous
  Country: DE (occurrence: DE)
  Receive Date: 20250415
  Receipt Date: 20250415
  Transmission Date: 20250716
  Serious: Yes (Death, Hospitalization, Other)
  Sender: UNITED THERAPEUTICS
  Company Number: DE-UNITED THERAPEUTICS-UNT-2025-012492

PATIENT
  Age: 58 Year

DRUGS (5)
  1. REMODULIN [Suspect]
     Active Substance: TREPROSTINIL
     Indication: Pulmonary arterial hypertension
  2. SOTATERCEPT [Suspect]
     Active Substance: SOTATERCEPT
     Indication: Pulmonary arterial hypertension
     Dosage: 0.3 MG/KG, Q3WK
  3. SOTATERCEPT [Suspect]
     Active Substance: SOTATERCEPT
     Dosage: 0.7 MG/KG, Q3WK
  4. COUMADIN [Suspect]
     Active Substance: WARFARIN SODIUM
     Indication: Peripheral artery thrombosis
     Dosage: (5 MG AND 7.5 MG), QOD
  5. MACITENTAN [Concomitant]
     Active Substance: MACITENTAN
     Indication: Pulmonary arterial hypertension

REACTIONS (3)
  - Haemorrhage intracranial [Fatal]
  - Unresponsive to stimuli [Unknown]
  - International normalised ratio increased [Unknown]
